FAERS Safety Report 10634741 (Version 1)
Quarter: 2014Q4

REPORT INFORMATION
  Report Type: Spontaneous
  Country: ZA (occurrence: ZA)
  Receive Date: 20141205
  Receipt Date: 20141205
  Transmission Date: 20150529
  Serious: Yes (Death)
  Sender: FDA-Public Use
  Company Number: ZA-SA-2014SA166027

PATIENT
  Age: 68 Year
  Sex: Female

DRUGS (3)
  1. RENAGEL [Suspect]
     Active Substance: SEVELAMER HYDROCHLORIDE
     Indication: HYPERPHOSPHATAEMIA
     Dosage: RENAGEL 2400MG TDS
     Route: 048
     Dates: start: 2012, end: 201410
  2. RENAGEL [Suspect]
     Active Substance: SEVELAMER HYDROCHLORIDE
     Indication: HYPERCALCAEMIA
     Dosage: RENAGEL 2400MG TDS
     Route: 048
     Dates: start: 2012, end: 201410
  3. ALFACALCIDOL [Concomitant]
     Active Substance: ALFACALCIDOL

REACTIONS (1)
  - Death [Fatal]

NARRATIVE: CASE EVENT DATE: 201410
